FAERS Safety Report 8472474-0 (Version None)
Quarter: 2012Q2

REPORT INFORMATION
  Report Type: 
  Country: None (occurrence: None)
  Receive Date: 20120627
  Receipt Date: 20111028
  Transmission Date: 20120825
  Serious: Yes (Hospitalization)
  Sender: FDA-Public Use
  Company Number: US-AMGEN-USASP2011056100

PATIENT
  Sex: Male

DRUGS (12)
  1. FOLIC ACID [Concomitant]
  2. SYNTHROID [Concomitant]
  3. EPOGEN [Suspect]
     Indication: ANAEMIA
     Dosage: 10000 IU, 3 TIMES/WK
     Dates: end: 20111028
  4. ATORVASTATIN [Concomitant]
  5. CLOPIDOGREL [Concomitant]
  6. PREVACID [Concomitant]
  7. SENNA                              /00142201/ [Concomitant]
  8. DOCUSATE [Concomitant]
  9. INSULIN [Concomitant]
  10. ASPIRIN [Concomitant]
  11. FERROUS SULFATE TAB [Concomitant]
  12. WARFARIN SODIUM [Concomitant]

REACTIONS (1)
  - TRANSIENT ISCHAEMIC ATTACK [None]
